FAERS Safety Report 4777171-0 (Version None)
Quarter: 2005Q3

REPORT INFORMATION
  Report Type: 
  Country: None (occurrence: None)
  Receive Date: 20050923
  Receipt Date: 20050829
  Transmission Date: 20060218
  Serious: Yes (Hospitalization)
  Sender: FDA-Public Use
  Company Number: JP-ROCHE-415693

PATIENT
  Age: 65 Year
  Sex: Male

DRUGS (3)
  1. NICARDIPINE HCL [Suspect]
     Indication: HYPERTENSION
     Dosage: INDICATION ALSO REPORTED AS CEREBRAL HAEMORRHAGE.
     Route: 041
     Dates: start: 20040409, end: 20040410
  2. ADALAT [Suspect]
     Indication: CEREBRAL HAEMORRHAGE
     Route: 048
     Dates: start: 20040408, end: 20040410
  3. PHENYTOIN [Concomitant]
     Indication: CEREBRAL HAEMORRHAGE
     Dosage: DOSE REPORTED AS CONTINUOUS.
     Route: 041
     Dates: start: 20040409, end: 20040409

REACTIONS (1)
  - INTESTINAL ISCHAEMIA [None]
